FAERS Safety Report 7200267-0 (Version None)
Quarter: 2010Q4

REPORT INFORMATION
  Report Type: 
  Country: None (occurrence: None)
  Receive Date: 20101228
  Receipt Date: 20101217
  Transmission Date: 20110411
  Serious: Yes (Hospitalization)
  Sender: FDA-Public Use
  Company Number: B0589636A

PATIENT
  Sex: Female
  Weight: 46 kg

DRUGS (23)
  1. TYKERB [Suspect]
     Indication: BREAST CANCER
     Dosage: 1250MG PER DAY
     Route: 048
     Dates: start: 20090701, end: 20090713
  2. LOXONIN [Concomitant]
     Indication: CANCER PAIN
     Route: 048
     Dates: end: 20090704
  3. MUCOSTA [Concomitant]
     Indication: PROPHYLAXIS
     Route: 048
     Dates: end: 20090704
  4. CODEINE PHOSPHATE [Concomitant]
     Route: 048
     Dates: end: 20090704
  5. MAGNESIUM OXIDE [Concomitant]
     Indication: CONSTIPATION PROPHYLAXIS
     Route: 048
     Dates: end: 20090704
  6. TAKEPRON [Concomitant]
     Indication: PROPHYLAXIS
     Route: 048
     Dates: end: 20090711
  7. CRAVIT [Concomitant]
     Indication: C-REACTIVE PROTEIN INCREASED
     Route: 048
     Dates: end: 20090701
  8. MYSLEE [Concomitant]
     Indication: INSOMNIA
     Route: 048
  9. AMINO ACID + VITAMIN [Concomitant]
     Indication: DECREASED APPETITE
     Route: 042
     Dates: end: 20090705
  10. AMINO ACID + VITAMIN [Concomitant]
     Route: 042
     Dates: start: 20090702, end: 20090716
  11. METHYLPREDNISOLONE SODIUM SUCCINATE [Concomitant]
     Indication: MALAISE
     Route: 042
     Dates: start: 20090702, end: 20090707
  12. FUROSEMIDE [Concomitant]
     Dates: start: 20090703, end: 20090715
  13. SOLDACTONE [Concomitant]
     Dates: start: 20090703, end: 20090715
  14. HEPARIN SODIUM [Concomitant]
     Indication: DISSEMINATED INTRAVASCULAR COAGULATION
     Route: 042
     Dates: start: 20090706, end: 20090716
  15. SOL-MELCORT [Concomitant]
     Indication: MALAISE
  16. PETHIDINE HYDROCHLORIDE [Concomitant]
     Indication: CANCER PAIN
     Dates: start: 20090706, end: 20090709
  17. FLURBIPROFEN [Concomitant]
     Indication: CANCER PAIN
     Dates: start: 20090706, end: 20090706
  18. MORPHINE HYDROCHLORIDE [Concomitant]
     Indication: CANCER PAIN
     Dates: start: 20090710, end: 20090716
  19. GLYCERIN [Concomitant]
     Indication: CONSTIPATION
     Route: 054
  20. LAXOBERON [Concomitant]
     Indication: CONSTIPATION
     Route: 048
     Dates: start: 20090701, end: 20090713
  21. GLYCEOL [Concomitant]
     Route: 042
     Dates: start: 20090701, end: 20090716
  22. UNKNOWN DRUG [Concomitant]
     Indication: DECREASED APPETITE
     Route: 042
     Dates: start: 20090702, end: 20090716
  23. UNKNOWN DRUG [Concomitant]
     Indication: MALAISE
     Route: 042
     Dates: start: 20090702, end: 20090707

REACTIONS (8)
  - ABDOMINAL PAIN [None]
  - DECREASED APPETITE [None]
  - DIARRHOEA [None]
  - DISSEMINATED INTRAVASCULAR COAGULATION [None]
  - HEPATIC FAILURE [None]
  - HEPATIC FUNCTION ABNORMAL [None]
  - JAUNDICE [None]
  - RENAL FAILURE [None]
